FAERS Safety Report 12609679 (Version 1)
Quarter: 2016Q3

REPORT INFORMATION
  Report Type: Spontaneous
  Country: US (occurrence: None)
  Receive Date: 20160729
  Receipt Date: 20160729
  Transmission Date: 20161109
  Serious: Yes (Other)
  Sender: FDA-Public Use
  Company Number: None

PATIENT
  Age: 27 Year
  Sex: Male
  Weight: 72.58 kg

DRUGS (2)
  1. NAPROXEN 250MG TABLEY, 250 MG [Suspect]
     Active Substance: NAPROXEN
     Indication: EPIDIDYMITIS
     Route: 048
     Dates: start: 20160727, end: 20160727
  2. CIPROFLOXACIN HCL 250MD TAB, 250 MG [Suspect]
     Active Substance: CIPROFLOXACIN HYDROCHLORIDE
     Indication: EPIDIDYMITIS
     Route: 048
     Dates: start: 20160726, end: 20160727

REACTIONS (8)
  - Paraesthesia [None]
  - Anxiety [None]
  - Restlessness [None]
  - Dysstasia [None]
  - Hypoaesthesia [None]
  - Burning sensation [None]
  - Balance disorder [None]
  - Tendon pain [None]

NARRATIVE: CASE EVENT DATE: 20160727
